FAERS Safety Report 21023783 (Version 1)
Quarter: 2022Q2

REPORT INFORMATION
  Report Type: Spontaneous
  Country: NA (occurrence: NA)
  Receive Date: 20220629
  Receipt Date: 20220629
  Transmission Date: 20220721
  Serious: Yes (Other)
  Sender: FDA-Public Use
  Company Number: NA-ViiV Healthcare Limited-NA2022GSK097227

PATIENT

DRUGS (8)
  1. TENOFOVIR DISOPROXIL FUMARATE [Suspect]
     Active Substance: TENOFOVIR DISOPROXIL FUMARATE
     Indication: HIV infection WHO clinical stage I
     Dosage: UNK
     Dates: start: 201903
  2. TENOFOVIR DISOPROXIL FUMARATE [Suspect]
     Active Substance: TENOFOVIR DISOPROXIL FUMARATE
     Indication: Chronic hepatitis
  3. LAMIVUDINE [Suspect]
     Active Substance: LAMIVUDINE
     Indication: HIV infection WHO clinical stage I
     Dosage: UNK
     Dates: start: 201903
  4. EFAVIRENZ [Suspect]
     Active Substance: EFAVIRENZ
     Indication: HIV infection WHO clinical stage I
     Dosage: UNK
     Dates: start: 201903
  5. COTRIMOXAZOLE [Concomitant]
     Active Substance: SULFAMETHOXAZOLE\TRIMETHOPRIM
     Indication: Opportunistic infection
     Dosage: 960 MG
  6. ISONIAZID [Concomitant]
     Active Substance: ISONIAZID
     Indication: Antibiotic prophylaxis
     Dosage: UNK
  7. AMILORIDE HCL W/ HYDROCHLOROTHIAZIDE [Concomitant]
     Active Substance: AMILORIDE HYDROCHLORIDE\HYDROCHLOROTHIAZIDE
     Indication: Drug therapy
     Dosage: (HYDROCHLOROTHIAZIDE-AMILORIDE 2.5/5 MG)
  8. PERINDOPRIL [Concomitant]
     Active Substance: PERINDOPRIL
     Indication: Drug therapy
     Dosage: 4 MG, 1D

REACTIONS (7)
  - Virologic failure [Recovered/Resolved]
  - Viral mutation identified [Unknown]
  - Pathogen resistance [Unknown]
  - Weight decreased [Recovered/Resolved]
  - Immunosuppression [Unknown]
  - Drug resistance [Unknown]
  - Treatment failure [Unknown]
